FAERS Safety Report 12240701 (Version 2)
Quarter: 2016Q3

REPORT INFORMATION
  Report Type: Spontaneous
  Country: US (occurrence: US)
  Receive Date: 20160406
  Receipt Date: 20160811
  Transmission Date: 20161109
  Serious: No
  Sender: FDA-Public Use
  Company Number: US-ASTRAZENECA-2016SE35406

PATIENT
  Age: 59 Year
  Sex: Female
  Weight: 62.1 kg

DRUGS (7)
  1. DALIRESP [Suspect]
     Active Substance: ROFLUMILAST
     Indication: CHRONIC OBSTRUCTIVE PULMONARY DISEASE
     Route: 048
     Dates: start: 2015, end: 2015
  2. VENTOLIN [Concomitant]
     Active Substance: ALBUTEROL SULFATE
     Indication: DYSPNOEA
     Dosage: TWO PUFFS AS NEEDED UP TO FOUR PER DAY
     Route: 055
  3. MUCINEX [Concomitant]
     Active Substance: GUAIFENESIN
     Indication: MUCOUS MEMBRANE DISORDER
     Route: 048
  4. MUCINEX [Concomitant]
     Active Substance: GUAIFENESIN
     Indication: MUCOUS MEMBRANE DISORDER
     Dosage: ONE OR TWO TABLETS, TWICE A DAY
     Route: 048
  5. SYMBICORT [Suspect]
     Active Substance: BUDESONIDE\FORMOTEROL FUMARATE DIHYDRATE
     Indication: CHRONIC OBSTRUCTIVE PULMONARY DISEASE
     Dosage: 160/4.5 MCG, TWO PUFFS, TWICE A DAY
     Route: 055
     Dates: start: 201410
  6. SPIRIVA [Concomitant]
     Active Substance: TIOTROPIUM BROMIDE MONOHYDRATE
     Indication: CHRONIC OBSTRUCTIVE PULMONARY DISEASE
     Route: 055
     Dates: start: 2014
  7. DALIRESP [Suspect]
     Active Substance: ROFLUMILAST
     Indication: SECRETION DISCHARGE
     Route: 048
     Dates: start: 2015, end: 2015

REACTIONS (12)
  - Dizziness [Unknown]
  - Product quality issue [Unknown]
  - Malaise [Unknown]
  - Intentional product misuse [Unknown]
  - Back pain [Unknown]
  - Hypotension [Unknown]
  - Dyspnoea [Unknown]
  - Cough [Unknown]
  - Drug dose omission [Unknown]
  - Diarrhoea [Recovered/Resolved]
  - Chronic obstructive pulmonary disease [Unknown]
  - Dysgeusia [Unknown]

NARRATIVE: CASE EVENT DATE: 2015
